FAERS Safety Report 5158366-3 (Version None)
Quarter: 2006Q4

REPORT INFORMATION
  Report Type: 
  Country: None (occurrence: None)
  Receive Date: 20061128
  Receipt Date: 20060315
  Transmission Date: 20070319
  Serious: No
  Sender: FDA-Public Use
  Company Number: US-GLAXOSMITHKLINE-A0597664A

PATIENT
  Age: 68 Year
  Sex: Female

DRUGS (7)
  1. LANOXIN [Suspect]
     Indication: ATRIAL FIBRILLATION
     Dosage: 25MCG PER DAY
     Route: 048
  2. ALTACE [Suspect]
     Indication: HYPERTENSION
     Dosage: 10MG TWICE PER DAY
     Dates: end: 20060315
  3. BENICAR HCT [Concomitant]
  4. PROTONIX [Concomitant]
  5. GLUCOPHAGE [Concomitant]
  6. ZETIA [Concomitant]
  7. HYDROCHLOROTHIAZIDE [Concomitant]

REACTIONS (1)
  - COUGH [None]
